FAERS Safety Report 15103584 (Version 1)
Quarter: 2018Q3

REPORT INFORMATION
  Report Type: Report from Study
  Country: CA (occurrence: CA)
  Receive Date: 20180703
  Receipt Date: 20180703
  Transmission Date: 20181010
  Serious: Yes (Life-Threatening, Disabling)
  Sender: FDA-Public Use
  Company Number: CA-JNJFOC-20180700144

PATIENT
  Age: 60 Year
  Sex: Female
  Weight: 74.84 kg

DRUGS (1)
  1. REMICADE [Suspect]
     Active Substance: INFLIXIMAB
     Indication: CROHN^S DISEASE
     Route: 042
     Dates: start: 20160510

REACTIONS (5)
  - Headache [Unknown]
  - Pyrexia [Unknown]
  - Nausea [Unknown]
  - Abdominal pain [Unknown]
  - Chills [Unknown]

NARRATIVE: CASE EVENT DATE: 20180620
